FAERS Safety Report 20817353 (Version 1)
Quarter: 2022Q2

REPORT INFORMATION
  Report Type: Spontaneous
  Country: US (occurrence: US)
  Receive Date: 20220512
  Receipt Date: 20220512
  Transmission Date: 20220721
  Serious: Yes (Hospitalization)
  Sender: FDA-Public Use
  Company Number: US-BRISTOL-MYERS SQUIBB COMPANY-2022-031887

PATIENT
  Age: 76 Year
  Sex: Male
  Weight: 77.11 kg

DRUGS (3)
  1. SPRYCEL [Suspect]
     Active Substance: DASATINIB
     Indication: Chronic myeloid leukaemia
     Dosage: DOSE : 100 MG; 70 MG;     FREQ : ONCE DAILY
     Route: 048
     Dates: start: 202103, end: 20220310
  2. SPRYCEL [Suspect]
     Active Substance: DASATINIB
     Route: 065
  3. RILUZOLE [Concomitant]
     Active Substance: RILUZOLE

REACTIONS (2)
  - Pleural effusion [Unknown]
  - Prescribed underdose [Unknown]

NARRATIVE: CASE EVENT DATE: 20220301
